FAERS Safety Report 20374139 (Version 2)
Quarter: 2022Q1

REPORT INFORMATION
  Report Type: Report from Study
  Country: US (occurrence: US)
  Receive Date: 20220125
  Receipt Date: 20220301
  Transmission Date: 20220424
  Serious: Yes (Other)
  Sender: FDA-Public Use
  Company Number: US-MYLANLABS-2022M1006184

PATIENT
  Age: 19 Year
  Sex: Male
  Weight: 105.2 kg

DRUGS (1)
  1. CLOZAPINE [Suspect]
     Active Substance: CLOZAPINE
     Indication: Schizoaffective disorder
     Dosage: 450 MILLIGRAM, QD HS
     Route: 048

REACTIONS (2)
  - Neutropenia [Unknown]
  - Drug level decreased [Recovered/Resolved]

NARRATIVE: CASE EVENT DATE: 20220110
